FAERS Safety Report 5278001-3 (Version None)
Quarter: 2007Q1

REPORT INFORMATION
  Report Type: 
  Country: None (occurrence: None)
  Receive Date: 20070321
  Receipt Date: 20070306
  Transmission Date: 20070707
  Serious: Yes (Hospitalization)
  Sender: FDA-Public Use
  Company Number: 2007-039DP

PATIENT
  Age: 8 Year
  Sex: Male

DRUGS (3)
  1. IBUPROFEN [Suspect]
     Indication: VIRAEMIA
     Dosage: 200 MG, TDS, ORAL
     Route: 048
  2. ACETAMINOPHEN [Concomitant]
  3. CEFTRIAXONE [Concomitant]

REACTIONS (10)
  - ANURIA [None]
  - APPENDICITIS [None]
  - MALAISE [None]
  - MUSCULOSKELETAL STIFFNESS [None]
  - OEDEMA PERIPHERAL [None]
  - RASH MACULAR [None]
  - RENAL PAPILLARY NECROSIS [None]
  - SOMNOLENCE [None]
  - URETERIC OBSTRUCTION [None]
  - URETHRAL HAEMORRHAGE [None]
